FAERS Safety Report 17490621 (Version 1)
Quarter: 2020Q1

REPORT INFORMATION
  Report Type: Spontaneous
  Country: US (occurrence: US)
  Receive Date: 20200303
  Receipt Date: 20200303
  Transmission Date: 20200409
  Serious: No
  Sender: FDA-Public Use
  Company Number: US-AKORN PHARMACEUTICALS-2019AKN01297

PATIENT
  Age: 23 Year
  Sex: Female
  Weight: 78.7 kg

DRUGS (6)
  1. MYORISAN [Suspect]
     Active Substance: ISOTRETINOIN
     Indication: HIDRADENITIS
     Dosage: 60 MG PER DAY ON THE 3RD MONTH
     Dates: start: 2018, end: 2018
  2. MYORISAN [Suspect]
     Active Substance: ISOTRETINOIN
     Indication: HIDRADENITIS
     Dosage: 80 MG TOTAL PER DAY
     Dates: start: 20181105, end: 20190503
  3. POLYMYXIN AND TRIMETHOPRIM [Concomitant]
     Dosage: UNK
     Route: 047
     Dates: start: 201902
  4. MYORISAN [Suspect]
     Active Substance: ISOTRETINOIN
     Indication: ACNE
     Dosage: 30 MG, 1X/DAY FOR 2 MONTHS
     Dates: start: 20180730, end: 2018
  5. MYORISAN [Suspect]
     Active Substance: ISOTRETINOIN
     Indication: ACNE
  6. SPRINTEC [Concomitant]
     Active Substance: ETHINYL ESTRADIOL\NORGESTIMATE

REACTIONS (7)
  - Drug ineffective for unapproved indication [Recovered/Resolved]
  - Impaired healing [Unknown]
  - Off label use [Recovered/Resolved]
  - Swelling [Unknown]
  - Headache [Recovering/Resolving]
  - Dizziness [Not Recovered/Not Resolved]
  - Skin operation [Recovered/Resolved]

NARRATIVE: CASE EVENT DATE: 2018
